FAERS Safety Report 8929353 (Version 1)
Quarter: 2012Q4

REPORT INFORMATION
  Report Type: Spontaneous
  Country: GB (occurrence: None)
  Receive Date: 20121119
  Receipt Date: 20121119
  Transmission Date: 20130627
  Serious: Yes (Other)
  Sender: FDA-Public Use
  Company Number: 2012-01656

PATIENT
  Age: 63 Year
  Sex: Female

DRUGS (3)
  1. SIMVASTATIN [Suspect]
     Indication: DRUG USE FOR UNKNOWN INDICATION
     Route: 048
     Dates: start: 2012, end: 20121016
  2. FLUCLOXACILLIN [Concomitant]
  3. PARACETAMOL [Concomitant]

REACTIONS (4)
  - Back pain [None]
  - Dyskinesia [None]
  - Pain [None]
  - Rash [None]
